FAERS Safety Report 15267007 (Version 1)
Quarter: 2018Q3

REPORT INFORMATION
  Report Type: Spontaneous
  Country: US (occurrence: US)
  Receive Date: 20180810
  Receipt Date: 20180810
  Transmission Date: 20181010
  Serious: Yes (Other)
  Sender: FDA-Public Use
  Company Number: US-BEH-2018093534

PATIENT
  Age: 35 Year
  Sex: Female
  Weight: 81.63 kg

DRUGS (11)
  1. PRENATAL                           /00231801/ [Concomitant]
     Active Substance: VITAMINS
  2. LMX                                /00033401/ [Concomitant]
  3. EPINEPHRINE. [Concomitant]
     Active Substance: EPINEPHRINE
  4. NORMAL SALINE [Concomitant]
     Active Substance: SODIUM CHLORIDE
  5. HAEGARDA [Suspect]
     Active Substance: HUMAN C1-ESTERASE INHIBITOR
     Indication: HEREDITARY ANGIOEDEMA
     Dosage: UNK
     Route: 058
  6. FLONASE [Concomitant]
     Active Substance: FLUTICASONE PROPIONATE
  7. BERINERT [Concomitant]
     Active Substance: HUMAN C1-ESTERASE INHIBITOR
     Indication: PRODUCT USED FOR UNKNOWN INDICATION
     Route: 065
  8. FIRAZYR [Concomitant]
     Active Substance: ICATIBANT ACETATE
  9. KALBITOR [Concomitant]
     Active Substance: ECALLANTIDE
  10. HAEGARDA [Suspect]
     Active Substance: HUMAN C1-ESTERASE INHIBITOR
     Indication: PROPHYLAXIS
     Dosage: 6000 IU, EVERY 3 DAYS
     Route: 058
     Dates: start: 20180531
  11. DIPHENHYDRAMINE. [Concomitant]
     Active Substance: DIPHENHYDRAMINE

REACTIONS (1)
  - Hereditary angioedema [Unknown]

NARRATIVE: CASE EVENT DATE: 2018
